FAERS Safety Report 6092135-5 (Version None)
Quarter: 2009Q1

REPORT INFORMATION
  Report Type: 
  Country: None (occurrence: None)
  Receive Date: 20090223
  Receipt Date: 20090223
  Transmission Date: 20090719
  Serious: Yes (Other)
  Sender: FDA-Public Use
  Company Number: None

PATIENT
  Age: 34 Year
  Sex: Female
  Weight: 102.9665 kg

DRUGS (1)
  1. VANCOMYCIN [Suspect]
     Indication: BREAST INFLAMMATION
     Dosage: 1.5 GM Q12H IV
     Route: 042
     Dates: start: 20090106, end: 20090109

REACTIONS (2)
  - INFUSION RELATED REACTION [None]
  - RASH PRURITIC [None]
